FAERS Safety Report 7371332-2 (Version None)
Quarter: 2011Q1

REPORT INFORMATION
  Report Type: 
  Country: None (occurrence: None)
  Receive Date: 20110324
  Receipt Date: 20100927
  Transmission Date: 20110831
  Serious: Yes (Hospitalization)
  Sender: FDA-Public Use
  Company Number: US-BAYER-201027875NA

PATIENT
  Sex: Female
  Weight: 64.853 kg

DRUGS (4)
  1. YAZ [Suspect]
     Indication: CONTRACEPTION
     Dosage: UNK
     Dates: start: 20061006, end: 20080720
  2. YASMIN [Suspect]
     Indication: CONTRACEPTION
     Dosage: UNK
     Route: 048
     Dates: start: 20061006, end: 20080720
  3. LORTAB [Concomitant]
     Indication: PAIN
     Dosage: UNK UNK, PRN
  4. ALEVE [Concomitant]

REACTIONS (1)
  - PULMONARY EMBOLISM [None]
